FAERS Safety Report 5562738-2 (Version None)
Quarter: 2007Q4

REPORT INFORMATION
  Report Type: 
  Country: None (occurrence: None)
  Receive Date: 20071211
  Receipt Date: 20071211
  Transmission Date: 20080405
  Serious: Yes (Life-Threatening, Hospitalization, Disabling)
  Sender: FDA-Public Use
  Company Number: None

PATIENT
  Sex: Male
  Weight: 37.6486 kg

DRUGS (1)
  1. LAMICTAL [Suspect]
     Indication: CONVULSION
     Dosage: 50 MG  BID  PO
     Route: 048
     Dates: start: 20070808, end: 20071003

REACTIONS (2)
  - GASTROINTESTINAL DISORDER [None]
  - STEVENS-JOHNSON SYNDROME [None]
